FAERS Safety Report 18035810 (Version 4)
Quarter: 2020Q3

REPORT INFORMATION
  Report Type: Report from Study
  Country: DE (occurrence: DE)
  Receive Date: 20200717
  Receipt Date: 20200930
  Transmission Date: 20201103
  Serious: Yes (Death, Hospitalization, Other)
  Sender: FDA-Public Use
  Company Number: DE-AMGEN-DEUNI2020114384

PATIENT
  Age: 64 Year
  Sex: Female

DRUGS (16)
  1. ERENUMAB [Suspect]
     Active Substance: ERENUMAB
     Dosage: 140 MILLIGRAM
     Route: 065
     Dates: start: 20200311, end: 20200311
  2. ERENUMAB [Suspect]
     Active Substance: ERENUMAB
     Dosage: 140 MILLIGRAM
     Route: 065
     Dates: start: 20200409, end: 20200409
  3. ERENUMAB [Suspect]
     Active Substance: ERENUMAB
     Indication: MIGRAINE
     Dosage: 70 MILLIGRAM
     Route: 058
     Dates: start: 20190729, end: 20190729
  4. ERENUMAB [Suspect]
     Active Substance: ERENUMAB
     Dosage: 140 MILLIGRAM
     Route: 065
     Dates: start: 20190925, end: 20190925
  5. ERENUMAB [Suspect]
     Active Substance: ERENUMAB
     Dosage: 140 MILLIGRAM
     Route: 065
     Dates: start: 20200117, end: 20200117
  6. ERENUMAB [Suspect]
     Active Substance: ERENUMAB
     Dosage: 140 MILLIGRAM
     Route: 065
     Dates: start: 20200514, end: 20200514
  7. ERENUMAB [Suspect]
     Active Substance: ERENUMAB
     Dosage: UNK
     Route: 065
  8. NAPROXEN. [Concomitant]
     Active Substance: NAPROXEN
     Indication: PAIN
     Dosage: 500 MILLIGRAM, AS NECESSARY
     Route: 048
     Dates: start: 20161207
  9. ERENUMAB [Suspect]
     Active Substance: ERENUMAB
     Dosage: 140 MILLIGRAM
     Route: 065
     Dates: start: 20191021, end: 20191021
  10. ERENUMAB [Suspect]
     Active Substance: ERENUMAB
     Dosage: 140 MILLIGRAM
     Route: 065
     Dates: start: 20200214, end: 20200214
  11. ZOLMITRIPTAN. [Concomitant]
     Active Substance: ZOLMITRIPTAN
     Indication: MIGRAINE
     Dosage: 5 MILLIGRAM, AS NECESSARY
     Route: 048
     Dates: start: 20190802
  12. ERENUMAB [Suspect]
     Active Substance: ERENUMAB
     Dosage: 140 MILLIGRAM
     Route: 065
     Dates: start: 20191118, end: 20191118
  13. ERENUMAB [Suspect]
     Active Substance: ERENUMAB
     Dosage: 70 MILLIGRAM
     Route: 065
     Dates: start: 20190826, end: 20190826
  14. DOXEPIN [Concomitant]
     Active Substance: DOXEPIN
     Indication: SLEEP DISORDER
     Dosage: 25 MILLIGRAM, QD
     Route: 048
     Dates: start: 20190117
  15. ERENUMAB [Suspect]
     Active Substance: ERENUMAB
     Dosage: 140 MILLIGRAM
     Route: 065
     Dates: start: 20191218, end: 20191218
  16. ERENUMAB [Suspect]
     Active Substance: ERENUMAB
     Dosage: 140 MILLIGRAM
     Route: 065
     Dates: start: 20200610, end: 20200610

REACTIONS (25)
  - Mydriasis [Fatal]
  - Haemothorax [Unknown]
  - Atrial fibrillation [Unknown]
  - Mesenteric vascular occlusion [Unknown]
  - Aortic aneurysm [Unknown]
  - Infarction [Fatal]
  - Hemiplegia [Fatal]
  - Diverticulitis [Unknown]
  - Therapy non-responder [Unknown]
  - Brain death [Fatal]
  - Haematoma [Recovered/Resolved]
  - Diverticulum intestinal [Unknown]
  - Coma [Fatal]
  - Post procedural haemorrhage [Recovered/Resolved]
  - Goitre [Unknown]
  - Sulcus vocalis [Fatal]
  - Cardiac tamponade [Recovered/Resolved]
  - Osteochondrosis [Unknown]
  - Cerebrosclerosis [Unknown]
  - Swelling [Fatal]
  - Peripheral venous disease [Unknown]
  - Thrombosis [Unknown]
  - Pneumomediastinum [Unknown]
  - Aortic stenosis [Unknown]
  - Renal cyst [Unknown]

NARRATIVE: CASE EVENT DATE: 2020
